FAERS Safety Report 5154790-3 (Version None)
Quarter: 2006Q4

REPORT INFORMATION
  Report Type: 
  Country: None (occurrence: None)
  Receive Date: 20061115
  Receipt Date: 20061115
  Transmission Date: 20070319
  Serious: Yes (Other)
  Sender: FDA-Public Use
  Company Number: None

PATIENT
  Age: 71 Year
  Sex: Female
  Weight: 90.7194 kg

DRUGS (2)
  1. TAMIFLU [Suspect]
     Indication: PNEUMONIA
     Dosage: 75 MG 2 TIMES DAILY PO
     Route: 048
     Dates: start: 20060216, end: 20060220
  2. TAMIFLU [Suspect]
     Indication: RESPIRATORY DISORDER
     Dosage: 75 MG 2 TIMES DAILY PO
     Route: 048
     Dates: start: 20060216, end: 20060220

REACTIONS (7)
  - CONFUSIONAL STATE [None]
  - DYSSTASIA [None]
  - FEELING ABNORMAL [None]
  - HALLUCINATION [None]
  - LOSS OF CONSCIOUSNESS [None]
  - MUSCULAR WEAKNESS [None]
  - SPEECH DISORDER [None]
